FAERS Safety Report 13617825 (Version 4)
Quarter: 2017Q3

REPORT INFORMATION
  Report Type: Spontaneous
  Country: JP (occurrence: JP)
  Receive Date: 20170606
  Receipt Date: 20170714
  Transmission Date: 20171127
  Serious: Yes (Other)
  Sender: FDA-Public Use
  Company Number: JP-ABBVIE-17P-087-1998588-00

PATIENT
  Age: 79 Year
  Sex: Male
  Weight: 31 kg

DRUGS (15)
  1. LOPERAMIDE [Suspect]
     Active Substance: LOPERAMIDE
     Dosage: PRN
     Route: 048
  2. REBAMIPIDE [Suspect]
     Active Substance: REBAMIPIDE
     Indication: GASTRIC DISORDER
     Route: 048
     Dates: end: 20170522
  3. TALION [Suspect]
     Active Substance: BEPOTASTINE
     Indication: PRURITUS
     Route: 048
     Dates: end: 20170523
  4. COLONEL [Concomitant]
     Active Substance: CALCIUM POLYCARBOPHIL
     Indication: IRRITABLE BOWEL SYNDROME
     Route: 048
  5. LIPACREON [Suspect]
     Active Substance: PANCRELIPASE
     Route: 048
     Dates: start: 20170519, end: 20170522
  6. LIPACREON [Suspect]
     Active Substance: PANCRELIPASE
     Indication: DIARRHOEA
     Dosage: CUMULATIVE DOSE TO REACTION WAS 400-500MG
     Route: 048
     Dates: start: 20170519, end: 20170522
  7. FEBURIC [Suspect]
     Active Substance: FEBUXOSTAT
     Route: 048
     Dates: start: 20170512, end: 20170523
  8. YOKUKANSAN [Suspect]
     Active Substance: HERBALS
     Indication: NEUROSIS
     Route: 048
     Dates: end: 20170522
  9. LOPERAMIDE [Suspect]
     Active Substance: LOPERAMIDE
     Indication: DIARRHOEA
     Route: 048
     Dates: start: 20170519, end: 20170524
  10. LAC-B [Concomitant]
     Active Substance: BIFIDOBACTERIUM SPP.
     Indication: DIARRHOEA
     Route: 048
  11. MIYA-BM [Concomitant]
     Active Substance: CLOSTRIDIUM BUTYRICUM SPORES STRAIN M-55
     Indication: DIARRHOEA
     Route: 048
  12. LIPACREON [Suspect]
     Active Substance: PANCRELIPASE
     Route: 048
     Dates: start: 20161216, end: 20170304
  13. FEBURIC [Suspect]
     Active Substance: FEBUXOSTAT
     Indication: HYPERURICAEMIA
     Route: 048
     Dates: start: 201604, end: 20170512
  14. LIPACREON [Suspect]
     Active Substance: PANCRELIPASE
     Route: 048
     Dates: start: 20170519, end: 20170523
  15. LOPEMIN [Concomitant]
     Active Substance: LOPERAMIDE HYDROCHLORIDE
     Indication: PRODUCT USED FOR UNKNOWN INDICATION
     Route: 048

REACTIONS (2)
  - Hepatic function abnormal [Recovering/Resolving]
  - Pancytopenia [Recovering/Resolving]

NARRATIVE: CASE EVENT DATE: 20170517
